FAERS Safety Report 7483551-5 (Version None)
Quarter: 2011Q2

REPORT INFORMATION
  Report Type: 
  Country: None (occurrence: None)
  Receive Date: 20110517
  Receipt Date: 20110511
  Transmission Date: 20111010
  Serious: Yes (Life-Threatening, Other)
  Sender: FDA-Public Use
  Company Number: US-PFIZER INC-2011101325

PATIENT
  Sex: Male
  Weight: 99.773 kg

DRUGS (5)
  1. LYRICA [Suspect]
     Indication: BONE PAIN
     Dosage: 75 MG, 2X/DAY
     Dates: start: 20110407, end: 20110420
  2. PRISTIQ [Concomitant]
     Indication: ANXIETY
     Dosage: 50 MG, DAILY
  3. NEXIUM [Concomitant]
     Indication: GASTROOESOPHAGEAL REFLUX DISEASE
     Dosage: 40 MG, DAILY
  4. CLONAZEPAM [Concomitant]
     Indication: MYOCLONUS
     Dosage: 0.25 MG, 2X/DAY
  5. TRICOR [Concomitant]
     Indication: BLOOD CHOLESTEROL INCREASED
     Dosage: 145 MG, DAILY

REACTIONS (3)
  - PHARYNGEAL OEDEMA [None]
  - DYSPNOEA [None]
  - HYPERSENSITIVITY [None]
